FAERS Safety Report 15189789 (Version 6)
Quarter: 2023Q1

REPORT INFORMATION
  Report Type: Other
  Country: CA (occurrence: None)
  Receive Date: 20180724
  Receipt Date: 20230105
  Transmission Date: 20230417
  Serious: Yes (Other)
  Sender: FDA-Public Use
  Company Number: CA-ROCHE-2110778

PATIENT
  Age: 44 Year
  Sex: Female
  Weight: 86.9 kg

DRUGS (6)
  1. OCREVUS [Suspect]
     Active Substance: OCRELIZUMAB
     Indication: Relapsing-remitting multiple sclerosis
     Dosage: 300 MG DAY 0 AND DAY 14, THEN 600 MG EVERY 6 MONTHS
     Route: 042
     Dates: start: 20180410, end: 20180925
  2. OCREVUS [Suspect]
     Active Substance: OCRELIZUMAB
     Route: 042
  3. PREGABALIN [Concomitant]
     Active Substance: PREGABALIN
  4. TYLENOL [Concomitant]
     Active Substance: ACETAMINOPHEN
     Indication: Premedication
     Dosage: TIME OF ADMINISTRATION: 10:30 HRS
     Route: 048
  5. BENADRYL [Concomitant]
     Active Substance: DIPHENHYDRAMINE HYDROCHLORIDE
     Indication: Premedication
     Dosage: TIME OF ADMINISTRATION: 10:30 HRS, 13: 40 HRS
     Route: 048
  6. SOLU-MEDROL [Concomitant]
     Active Substance: METHYLPREDNISOLONE SODIUM SUCCINATE
     Indication: Premedication
     Dosage: TIME OF ADMINISTRATION: 10:45 HRS
     Route: 042

REACTIONS (9)
  - Eczema [Not Recovered/Not Resolved]
  - Cyst [Not Recovered/Not Resolved]
  - Carpal tunnel syndrome [Not Recovered/Not Resolved]
  - Infusion related reaction [Recovered/Resolved]
  - Depression [Recovered/Resolved]
  - Pain in extremity [Not Recovered/Not Resolved]
  - Hypoaesthesia [Not Recovered/Not Resolved]
  - Skin papilloma [Not Recovered/Not Resolved]
  - Adverse drug reaction [Unknown]

NARRATIVE: CASE EVENT DATE: 20180410
